FAERS Safety Report 14856873 (Version 1)
Quarter: 2018Q2

REPORT INFORMATION
  Report Type: Spontaneous
  Country: US (occurrence: US)
  Receive Date: 20180507
  Receipt Date: 20180507
  Transmission Date: 20180711
  Serious: No
  Sender: FDA-Public Use
  Company Number: US-ROCHE-2074838

PATIENT
  Sex: Female

DRUGS (2)
  1. ESBRIET [Suspect]
     Active Substance: PIRFENIDONE
     Indication: IDIOPATHIC PULMONARY FIBROSIS
     Dosage: 1 TAB TID FOR 1 WEEK
     Route: 048
     Dates: start: 20180207
  2. ESBRIET [Suspect]
     Active Substance: PIRFENIDONE
     Dosage: 2 TAB TID FOR 1 WEEK, 3 TAB TID FOR 1 WEEK
     Route: 048

REACTIONS (2)
  - Drug dose omission [Unknown]
  - Dyspnoea [Not Recovered/Not Resolved]
